FAERS Safety Report 6156298-5 (Version None)
Quarter: 2009Q2

REPORT INFORMATION
  Report Type: 
  Country: None (occurrence: None)
  Receive Date: 20090413
  Receipt Date: 20081206
  Transmission Date: 20091009
  Serious: Yes (Other)
  Sender: FDA-Public Use
  Company Number: ENDC20080043

PATIENT
  Sex: Male

DRUGS (2)
  1. ENDOCET 10MG/ 650MG [Suspect]
     Indication: PAIN
     Dosage: 10 MG, 1 TAB Q4-6H, PER ORAL
     Route: 048
  2. ENDOCET 10MG/ 325MG [Suspect]
     Indication: PAIN
     Dosage: 10 MG, PER ORAL
     Route: 048

REACTIONS (7)
  - CONSTIPATION [None]
  - FEELING ABNORMAL [None]
  - IMPAIRED DRIVING ABILITY [None]
  - PRODUCT QUALITY ISSUE [None]
  - RENAL DISORDER [None]
  - SELF-MEDICATION [None]
  - SOMNOLENCE [None]
